FAERS Safety Report 5962071-0 (Version None)
Quarter: 2008Q4

REPORT INFORMATION
  Report Type: 
  Country: None (occurrence: None)
  Receive Date: 20081121
  Receipt Date: 20081112
  Transmission Date: 20090506
  Serious: Yes (Other)
  Sender: FDA-Public Use
  Company Number: PHHY2008AR28074

PATIENT
  Sex: Female

DRUGS (1)
  1. DIOVAN [Suspect]
     Indication: HYPERTENSION
     Dosage: 1.5 TO 2 TABLETS/DAY
     Route: 048
     Dates: start: 20060101

REACTIONS (3)
  - CATARACT [None]
  - NERVOUSNESS [None]
  - SURGERY [None]
